FAERS Safety Report 9716147 (Version 1)
Quarter: 2013Q4

REPORT INFORMATION
  Report Type: Spontaneous
  Country: US (occurrence: KR)
  Receive Date: 20131127
  Receipt Date: 20131127
  Transmission Date: 20140711
  Serious: Yes (Death)
  Sender: FDA-Public Use
  Company Number: KR-FRI-1000051748

PATIENT
  Age: 89 Year
  Sex: Male
  Weight: 58 kg

DRUGS (11)
  1. ROFLUMILAST [Suspect]
     Indication: CHRONIC OBSTRUCTIVE PULMONARY DISEASE
     Dosage: 500 MCG
     Route: 048
     Dates: start: 20130828
  2. VENTOLIN NEBULES [Concomitant]
     Dates: start: 20130927, end: 20131002
  3. AVENTRO [Concomitant]
     Dates: start: 20130927, end: 20131011
  4. SERETIDE [Concomitant]
     Dates: start: 20130731, end: 20131011
  5. ASPIRIN [Concomitant]
     Dates: start: 20130731, end: 20131011
  6. PREGREL [Concomitant]
     Dates: start: 20130731, end: 20131011
  7. AMINOPHYLLINE [Concomitant]
     Dates: start: 20130731, end: 20131011
  8. HERBEN [Concomitant]
     Dates: start: 20130731, end: 20131011
  9. SIGMART [Concomitant]
     Dates: start: 20130731, end: 20131011
  10. CANDEMORE [Concomitant]
     Dates: start: 20130731, end: 20131011
  11. CRESTOR [Concomitant]
     Dates: start: 20130731, end: 20131011

REACTIONS (1)
  - Pneumonia [Fatal]
